FAERS Safety Report 19233355 (Version 4)
Quarter: 2021Q3

REPORT INFORMATION
  Report Type: Report from Study
  Country: US (occurrence: US)
  Receive Date: 20210507
  Receipt Date: 20210823
  Transmission Date: 20211014
  Serious: Yes (Hospitalization)
  Sender: FDA-Public Use
  Company Number: NVSC2021US103733

PATIENT
  Age: 59 Year
  Sex: Male
  Weight: 68.03 kg

DRUGS (3)
  1. OPSUMIT [Concomitant]
     Active Substance: MACITENTAN
     Indication: PRODUCT USED FOR UNKNOWN INDICATION
     Route: 065
  2. TREPROSTINIL. [Suspect]
     Active Substance: TREPROSTINIL
     Dosage: (10 NG/KG/MIN) CONTINUOUS
     Route: 042
     Dates: start: 20210430
  3. TREPROSTINIL. [Suspect]
     Active Substance: TREPROSTINIL
     Indication: PULMONARY ARTERIAL HYPERTENSION
     Dosage: (10 NG/KG/MIN) CONTINUOUS
     Route: 042
     Dates: start: 20210430

REACTIONS (5)
  - Rectal haemorrhage [Unknown]
  - Flushing [Recovered/Resolved]
  - Gastrointestinal haemorrhage [Unknown]
  - Dyspepsia [Recovered/Resolved]
  - Back pain [Unknown]

NARRATIVE: CASE EVENT DATE: 20210731
